FAERS Safety Report 5945490-8 (Version None)
Quarter: 2008Q4

REPORT INFORMATION
  Report Type: 
  Country: None (occurrence: None)
  Receive Date: 20081107
  Receipt Date: 20081027
  Transmission Date: 20090506
  Serious: Yes (Other)
  Sender: FDA-Public Use
  Company Number: US-PFIZER INC-2008090585

PATIENT
  Sex: Male
  Weight: 93 kg

DRUGS (2)
  1. ZYVOX [Suspect]
     Indication: INFECTION
     Route: 048
     Dates: start: 20081020, end: 20081020
  2. COUMADIN [Concomitant]

REACTIONS (5)
  - DIZZINESS [None]
  - HAEMOPTYSIS [None]
  - MALAISE [None]
  - NAUSEA [None]
  - PROTHROMBIN TIME PROLONGED [None]
